FAERS Safety Report 13564977 (Version 6)
Quarter: 2019Q2

REPORT INFORMATION
  Report Type: Spontaneous
  Country: IE (occurrence: IE)
  Receive Date: 20170519
  Receipt Date: 20190429
  Transmission Date: 20190711
  Serious: Yes (Hospitalization, Other)
  Sender: FDA-Public Use
  Company Number: IE-SA-2017SA086365

PATIENT
  Age: 29 Year
  Sex: Female

DRUGS (8)
  1. LEMTRADA [Suspect]
     Active Substance: ALEMTUZUMAB
     Indication: MULTIPLE SCLEROSIS
     Dosage: 12 MG,UNK
     Route: 041
     Dates: start: 201511
  2. KEPPRA [Concomitant]
     Active Substance: LEVETIRACETAM
     Indication: HYPERTENSION
  3. RITUXIMAB. [Concomitant]
     Active Substance: RITUXIMAB
     Dosage: UNK UNK, UNK
     Route: 065
  4. KEPPRA [Concomitant]
     Active Substance: LEVETIRACETAM
     Indication: SEIZURE
  5. PONSTAN [Concomitant]
     Active Substance: MEFENAMIC ACID
     Dosage: UNK UNK,PRN
     Route: 065
  6. LEMTRADA [Suspect]
     Active Substance: ALEMTUZUMAB
     Dosage: 12 MG,UNK
     Route: 041
     Dates: start: 201611
  7. KEPPRA [Concomitant]
     Active Substance: LEVETIRACETAM
     Indication: POSTERIOR REVERSIBLE ENCEPHALOPATHY SYNDROME
     Dosage: UNK UNK, BID
     Route: 042
     Dates: start: 201705, end: 201804
  8. METHYLPREDNISOLONE. [Concomitant]
     Active Substance: METHYLPREDNISOLONE
     Indication: RENAL DISORDER
     Dosage: UNK UNK, UNK
     Route: 065

REACTIONS (15)
  - Goodpasture^s syndrome [Unknown]
  - Renal failure [Not Recovered/Not Resolved]
  - Headache [Unknown]
  - Nephropathy [Not Recovered/Not Resolved]
  - Weight increased [Unknown]
  - Blood creatinine increased [Unknown]
  - Protein urine present [Unknown]
  - Oedema peripheral [Unknown]
  - Lethargy [Unknown]
  - Nausea [Not Recovered/Not Resolved]
  - Anuria [Unknown]
  - Malaise [Unknown]
  - Headache [Not Recovered/Not Resolved]
  - Dyspnoea [Unknown]
  - Red blood cells urine positive [Unknown]

NARRATIVE: CASE EVENT DATE: 20151102
